FAERS Safety Report 14668510 (Version 4)
Quarter: 2018Q4

REPORT INFORMATION
  Report Type: Spontaneous
  Country: DE (occurrence: DE)
  Receive Date: 20180322
  Receipt Date: 20181020
  Transmission Date: 20190204
  Serious: Yes (Hospitalization, Other)
  Sender: FDA-Public Use
  Company Number: DE-AMGEN-DEUSP2018036472

PATIENT
  Age: 56 Year
  Sex: Female
  Weight: 67 kg

DRUGS (1)
  1. XGEVA [Suspect]
     Active Substance: DENOSUMAB
     Indication: BREAST CANCER
     Dosage: 120 MG, Q4WK
     Route: 058
     Dates: start: 201302

REACTIONS (5)
  - Gingivitis [Unknown]
  - Injury [Unknown]
  - Osteonecrosis of jaw [Recovering/Resolving]
  - Tooth extraction [Unknown]
  - Osteitis [Unknown]

NARRATIVE: CASE EVENT DATE: 201308
